FAERS Safety Report 8042161-1 (Version None)
Quarter: 2011Q4

REPORT INFORMATION
  Report Type: 
  Country: None (occurrence: None)
  Receive Date: 20111202
  Receipt Date: 20101115
  Transmission Date: 20120403
  Serious: Yes (Other)
  Sender: FDA-Public Use
  Company Number: 2010SP060697

PATIENT
  Age: 23 Year
  Sex: Female

DRUGS (2)
  1. NUVARING [Suspect]
     Indication: CONTRACEPTION
     Dosage: 1 DF; ;VAG
     Route: 067
     Dates: start: 20090101, end: 20100101
  2. ORTHO TRI-CYCLEN LO [Concomitant]

REACTIONS (1)
  - DEEP VEIN THROMBOSIS [None]
